FAERS Safety Report 5698697-1 (Version None)
Quarter: 2008Q2

REPORT INFORMATION
  Report Type: 
  Country: None (occurrence: None)
  Receive Date: 20080408
  Receipt Date: 20070320
  Transmission Date: 20081010
  Serious: No
  Sender: FDA-Public Use
  Company Number: US-BAYER-US-2007-009978

PATIENT
  Age: 52 Year
  Sex: Female
  Weight: 49 kg

DRUGS (3)
  1. MENOSTAR [Suspect]
     Route: 062
  2. MENOSTAR [Suspect]
  3. MENOSTAR [Suspect]

REACTIONS (6)
  - ANXIETY [None]
  - NERVOUSNESS [None]
  - PAIN [None]
  - PHARMACEUTICAL PRODUCT COMPLAINT [None]
  - SOMNOLENCE [None]
  - WEIGHT DECREASED [None]
